FAERS Safety Report 9016017 (Version 2)
Quarter: 2013Q3

REPORT INFORMATION
  Report Type: Spontaneous
  Country: CA (occurrence: CA)
  Receive Date: 20130116
  Receipt Date: 20130725
  Transmission Date: 20140515
  Serious: Yes (Hospitalization, Other)
  Sender: FDA-Public Use
  Company Number: CA-AMGEN-CANSP2013002775

PATIENT
  Age: 47 Year
  Sex: Female

DRUGS (6)
  1. ENBREL [Suspect]
     Indication: RHEUMATOID ARTHRITIS
     Dosage: UNK
     Route: 065
     Dates: start: 20121010
  2. NAPROXEN [Concomitant]
     Dosage: UNK
  3. ASPIRIN [Concomitant]
     Dosage: UNK
  4. MICARDIS PLUS [Concomitant]
     Dosage: UNK
  5. PENTALOC [Concomitant]
     Dosage: UNK
  6. LORATADIN [Concomitant]
     Dosage: UNK

REACTIONS (3)
  - Myocarditis [Recovered/Resolved]
  - Hospitalisation [Recovered/Resolved]
  - Bronchitis [Recovered/Resolved]
